FAERS Safety Report 13138130 (Version 2)
Quarter: 2017Q1

REPORT INFORMATION
  Report Type: Spontaneous
  Country: US (occurrence: US)
  Receive Date: 20170123
  Receipt Date: 20170123
  Transmission Date: 20170428
  Serious: Yes (Death, Hospitalization)
  Sender: FDA-Public Use
  Company Number: US-UNITED THERAPEUTICS-UNT-2016-010529

PATIENT
  Sex: Female
  Weight: 45.81 kg

DRUGS (2)
  1. REMODULIN [Suspect]
     Active Substance: TREPROSTINIL
     Indication: PULMONARY ARTERIAL HYPERTENSION
     Dosage: 0.024 ?G/KG, Q48 HOURS
     Route: 041
     Dates: start: 20160408, end: 20160703
  2. REMODULIN [Suspect]
     Active Substance: TREPROSTINIL
     Dosage: 0.024 ?G/KG, CONTINUING
     Route: 041
     Dates: start: 20160412

REACTIONS (3)
  - Hypotension [Unknown]
  - Cardiac failure [Fatal]
  - Weight decreased [Unknown]

NARRATIVE: CASE EVENT DATE: 2016
